FAERS Safety Report 5718651-0 (Version None)
Quarter: 2008Q2

REPORT INFORMATION
  Report Type: 
  Country: None (occurrence: None)
  Receive Date: 20080425
  Receipt Date: 20080416
  Transmission Date: 20081010
  Serious: Yes (Hospitalization)
  Sender: FDA-Public Use
  Company Number: US-ABBOTT-08P-163-0432883-00

PATIENT
  Sex: Female
  Weight: 74.91 kg

DRUGS (13)
  1. HUMIRA [Suspect]
     Indication: RHEUMATOID ARTHRITIS
     Route: 058
     Dates: start: 20061001
  2. HUMIRA [Suspect]
     Indication: OSTEOARTHRITIS
  3. QUETIAPINE FUMARATE [Concomitant]
     Indication: BIPOLAR DISORDER
     Route: 048
  4. QUETIAPINE FUMARATE [Concomitant]
     Indication: HORMONE LEVEL ABNORMAL
  5. OMEPRAZOLE [Concomitant]
     Indication: HIATUS HERNIA
     Route: 048
  6. OMEPRAZOLE [Concomitant]
     Indication: GASTROOESOPHAGEAL REFLUX DISEASE
  7. SIMVASTATIN [Concomitant]
     Indication: BLOOD CHOLESTEROL INCREASED
     Route: 048
  8. LISINOPRIL [Concomitant]
     Indication: HYPERTENSION
     Route: 048
  9. FLUOXETINE HYDROCHLORIDE [Concomitant]
     Indication: DEPRESSION
     Route: 048
  10. VITAMIN CAP [Concomitant]
     Indication: MEDICAL DIET
     Route: 048
  11. CALCIUM [Concomitant]
     Indication: DRUG USE FOR UNKNOWN INDICATION
     Route: 048
  12. ASCORBIC ACID [Concomitant]
     Indication: DRUG USE FOR UNKNOWN INDICATION
     Route: 048
  13. SERROUS SULFATE [Concomitant]
     Indication: ANAEMIA
     Route: 048

REACTIONS (8)
  - ALOPECIA [None]
  - GAIT DISTURBANCE [None]
  - JOINT SWELLING [None]
  - KNEE ARTHROPLASTY [None]
  - KNEE DEFORMITY [None]
  - MUSCULOSKELETAL PAIN [None]
  - NECK PAIN [None]
  - OSTEOARTHRITIS [None]
